FAERS Safety Report 7337598-X (Version None)
Quarter: 2011Q1

REPORT INFORMATION
  Report Type: 
  Country: None (occurrence: None)
  Receive Date: 20110303
  Receipt Date: 20110303
  Transmission Date: 20110831
  Serious: Yes (Life-Threatening, Other)
  Sender: FDA-Public Use
  Company Number: None

PATIENT
  Age: 37 Year
  Sex: Female
  Weight: 79.3795 kg

DRUGS (2)
  1. DEXILANT [Suspect]
     Indication: GASTROENTERITIS
     Dosage: 1 TABLET DAILY BUCCAL
     Route: 002
     Dates: start: 20110110, end: 20110208
  2. METHYLPREDNISOLONE [Concomitant]

REACTIONS (2)
  - STEVENS-JOHNSON SYNDROME [None]
  - FEAR [None]
